FAERS Safety Report 8469807-8 (Version None)
Quarter: 2012Q2

REPORT INFORMATION
  Report Type: 
  Country: None (occurrence: None)
  Receive Date: 20120626
  Receipt Date: 20120620
  Transmission Date: 20120825
  Serious: Yes (Hospitalization, Other)
  Sender: FDA-Public Use
  Company Number: US-MERCK-1206USA01175

PATIENT
  Age: 9 Year
  Sex: Male

DRUGS (5)
  1. BACLOFEN [Concomitant]
     Route: 065
  2. SINEMET [Suspect]
     Route: 048
     Dates: start: 20100101
  3. CLONAZEPAM [Concomitant]
     Route: 065
  4. SINEMET [Suspect]
     Indication: DYSTONIA
     Route: 048
  5. SINEMET [Suspect]
     Route: 048

REACTIONS (5)
  - ILEUS [None]
  - NEUROLEPTIC MALIGNANT SYNDROME [None]
  - RESPIRATORY DISTRESS [None]
  - PYREXIA [None]
  - DEHYDRATION [None]
